FAERS Safety Report 25281736 (Version 2)
Quarter: 2025Q2

REPORT INFORMATION
  Report Type: Report from Study
  Country: US (occurrence: US)
  Receive Date: 20250508
  Receipt Date: 20250528
  Transmission Date: 20250716
  Serious: Yes (Death, Other)
  Sender: ACADIA PHARMACEUTICALS
  Company Number: US-ACADIA PHARMACEUTICALS INC.-ACA-2025-PIM-005183

PATIENT
  Sex: Male

DRUGS (16)
  1. NUPLAZID [Suspect]
     Active Substance: PIMAVANSERIN TARTRATE
     Indication: Hallucination
     Dosage: 34 MILLIGRAM, QD
     Route: 048
  2. NUPLAZID [Suspect]
     Active Substance: PIMAVANSERIN TARTRATE
     Indication: Parkinson^s disease psychosis
  3. OMEPRAZOLE [Concomitant]
     Active Substance: OMEPRAZOLE
  4. KETOCONAZOLE [Concomitant]
     Active Substance: KETOCONAZOLE
  5. ASPIRIN [Concomitant]
     Active Substance: ASPIRIN
  6. ATORVASTATIN CALCIUM [Concomitant]
     Active Substance: ATORVASTATIN CALCIUM
  7. DONEPEZIL [Concomitant]
     Active Substance: DONEPEZIL
  8. TAMSULOSIN [Concomitant]
     Active Substance: TAMSULOSIN
  9. FOLIC ACID [Concomitant]
     Active Substance: FOLIC ACID
  10. MELATONIN [Concomitant]
     Active Substance: MELATONIN
  11. TRAMADOL [Concomitant]
     Active Substance: TRAMADOL
  12. FINASTERIDE [Concomitant]
     Active Substance: FINASTERIDE
  13. SOMINEX [DIPHENHYDRAMINE HYDROCHLORIDE] [Concomitant]
  14. SPIRONOLACTONE [Concomitant]
     Active Substance: SPIRONOLACTONE
  15. CITALOPRAM [Concomitant]
     Active Substance: CITALOPRAM
  16. MEMANTINE [Concomitant]
     Active Substance: MEMANTINE

REACTIONS (1)
  - Death [Fatal]
